FAERS Safety Report 7508672-X (Version None)
Quarter: 2011Q2

REPORT INFORMATION
  Report Type: 
  Country: None (occurrence: None)
  Receive Date: 20110527
  Receipt Date: 20100607
  Transmission Date: 20111010
  Serious: No
  Sender: FDA-Public Use
  Company Number: A0863346A

PATIENT
  Age: 75 Year
  Sex: Male
  Weight: 59.1 kg

DRUGS (4)
  1. LISINOPRIL [Concomitant]
  2. VERAPAMIL [Concomitant]
  3. FLOVENT [Concomitant]
  4. VENTOLIN [Suspect]
     Indication: ASTHMA
     Dosage: 1PUFF AS REQUIRED
     Route: 055

REACTIONS (2)
  - THERAPEUTIC RESPONSE DECREASED [None]
  - PRODUCT QUALITY ISSUE [None]
